FAERS Safety Report 24725368 (Version 1)
Quarter: 2024Q4

REPORT INFORMATION
  Report Type: Report from Study
  Country: US (occurrence: None)
  Receive Date: 20241212
  Receipt Date: 20241212
  Transmission Date: 20250114
  Serious: Yes (Death)
  Sender: UMEDICA LABS
  Company Number: US-Umedica-000614

PATIENT
  Age: 59 Year
  Sex: Female

DRUGS (9)
  1. ROSUVASTATIN CALCIUM [Suspect]
     Active Substance: ROSUVASTATIN CALCIUM
     Indication: Product used for unknown indication
     Route: 048
  2. AMLODIPINE [Suspect]
     Active Substance: AMLODIPINE BESYLATE
     Indication: Product used for unknown indication
     Route: 048
  3. BUPROPION [Suspect]
     Active Substance: BUPROPION
     Indication: Product used for unknown indication
     Dosage: EXTENDED RELEASE
     Route: 048
  4. LURASIDONE [Suspect]
     Active Substance: LURASIDONE
     Indication: Product used for unknown indication
     Route: 048
  5. CLONAZEPAM [Suspect]
     Active Substance: CLONAZEPAM
     Indication: Product used for unknown indication
     Route: 048
  6. ZALEPLON [Suspect]
     Active Substance: ZALEPLON
     Indication: Product used for unknown indication
     Route: 048
  7. ACAMPROSATE [Suspect]
     Active Substance: ACAMPROSATE
     Indication: Product used for unknown indication
     Route: 048
  8. NALTREXONE [Suspect]
     Active Substance: NALTREXONE
     Indication: Product used for unknown indication
     Route: 048
  9. GABAPENTIN [Suspect]
     Active Substance: GABAPENTIN
     Indication: Product used for unknown indication
     Route: 048

REACTIONS (3)
  - Suspected suicide [Fatal]
  - Death [Fatal]
  - Toxicity to various agents [Fatal]
